FAERS Safety Report 13095600 (Version 4)
Quarter: 2017Q1

REPORT INFORMATION
  Report Type: Spontaneous
  Country: PL (occurrence: PL)
  Receive Date: 20170108
  Receipt Date: 20170202
  Transmission Date: 20170428
  Serious: Yes (Other)
  Sender: FDA-Public Use
  Company Number: PL-ROCHE-1875734

PATIENT
  Sex: Female

DRUGS (7)
  1. PERJETA [Suspect]
     Active Substance: PERTUZUMAB
     Indication: HER-2 POSITIVE BREAST CANCER
     Dosage: LAODING DOSE
     Route: 065
  2. HERCEPTIN [Suspect]
     Active Substance: TRASTUZUMAB
     Dosage: MAINTENANCE DOSE
     Route: 065
  3. CAMITOTIC [Suspect]
     Active Substance: DOCETAXEL
     Indication: HER-2 POSITIVE BREAST CANCER
     Route: 065
  4. PERJETA [Suspect]
     Active Substance: PERTUZUMAB
     Dosage: MAINTENANCE DOSE
     Route: 065
  5. HERCEPTIN [Suspect]
     Active Substance: TRASTUZUMAB
     Indication: HER-2 POSITIVE BREAST CANCER
     Dosage: LOADING DOSE
     Route: 065
  6. CAMITOTIC [Suspect]
     Active Substance: DOCETAXEL
     Route: 065
  7. CAMITOTIC [Suspect]
     Active Substance: DOCETAXEL
     Route: 065

REACTIONS (1)
  - Palmar-plantar erythrodysaesthesia syndrome [Not Recovered/Not Resolved]
